FAERS Safety Report 8999168 (Version 2)
Quarter: 2013Q1

REPORT INFORMATION
  Report Type: Report from Study
  Country: US (occurrence: US)
  Receive Date: 20130103
  Receipt Date: 20130301
  Transmission Date: 20140127
  Serious: Yes (Hospitalization, Other)
  Sender: FDA-Public Use
  Company Number: US-NAPPMUNDI-USA-2012-0097258

PATIENT
  Age: 55 Year
  Sex: Female
  Weight: 62.59 kg

DRUGS (2)
  1. OXYCONTIN (NDA 22-272) [Suspect]
     Indication: INTERVERTEBRAL DISC DISORDER
     Dosage: 60 MG, TID
     Route: 048
  2. OXYCONTIN (NDA 22-272) [Suspect]
     Dosage: 60 MG, SEE TEXT
     Route: 048

REACTIONS (2)
  - Road traffic accident [Recovered/Resolved]
  - Rib fracture [Unknown]
